FAERS Safety Report 4761082-0 (Version None)
Quarter: 2005Q3

REPORT INFORMATION
  Report Type: 
  Country: None (occurrence: None)
  Receive Date: 20050901
  Receipt Date: 20050819
  Transmission Date: 20060218
  Serious: Yes (Other)
  Sender: FDA-Public Use
  Company Number: 2005BI013511

PATIENT
  Age: 49 Year
  Sex: Female
  Weight: 90 kg

DRUGS (4)
  1. AVONEX [Suspect]
     Indication: MULTIPLE SCLEROSIS
     Dosage: 30 UG; QW; IM
     Route: 030
     Dates: start: 19980101
  2. AVONEX [Suspect]
     Indication: MULTIPLE SCLEROSIS
     Dosage: 30 UG; QW; IM
     Route: 030
  3. DIOVAN HCT [Concomitant]
  4. UNILAIR [Concomitant]

REACTIONS (4)
  - CHILLS [None]
  - DYSPNOEA [None]
  - HYPOAESTHESIA [None]
  - PYREXIA [None]
